FAERS Safety Report 5320255-9 (Version None)
Quarter: 2007Q2

REPORT INFORMATION
  Report Type: 
  Country: None (occurrence: None)
  Receive Date: 20070503
  Receipt Date: 20070503
  Transmission Date: 20071010
  Serious: Yes (Hospitalization)
  Sender: FDA-Public Use
  Company Number: None

PATIENT
  Age: 87 Year
  Sex: Female
  Weight: 53.5244 kg

DRUGS (2)
  1. COUMADIN [Suspect]
     Dosage: 7 MG 3 X A WEEK PO
     Route: 048
     Dates: start: 20061101, end: 20061212
  2. GINGER [Suspect]
     Dosage: ONCE A DAY PO

REACTIONS (6)
  - COAGULOPATHY [None]
  - ECCHYMOSIS [None]
  - EPISTAXIS [None]
  - HAEMATOCHEZIA [None]
  - HAEMOPTYSIS [None]
  - HAEMORRHAGE [None]
